FAERS Safety Report 12656189 (Version 1)
Quarter: 2016Q3

REPORT INFORMATION
  Report Type: Spontaneous
  Country: US (occurrence: US)
  Receive Date: 20160816
  Receipt Date: 20160816
  Transmission Date: 20161109
  Serious: No
  Sender: FDA-Public Use
  Company Number: US-GALDERMA-US15007300

PATIENT
  Age: 70 Year
  Sex: Female

DRUGS (3)
  1. METROGEL [Suspect]
     Active Substance: METRONIDAZOLE
     Dosage: 1%
     Route: 061
  2. ASPIRIN. [Concomitant]
     Active Substance: ASPIRIN
  3. METRONIDAZOLE. [Suspect]
     Active Substance: METRONIDAZOLE
     Indication: ROSACEA
     Route: 048
     Dates: start: 2012

REACTIONS (2)
  - Drug ineffective [Not Recovered/Not Resolved]
  - Neuropathy peripheral [Not Recovered/Not Resolved]
